FAERS Safety Report 4636721-5 (Version None)
Quarter: 2005Q2

REPORT INFORMATION
  Report Type: 
  Country: None (occurrence: None)
  Receive Date: 20050414
  Receipt Date: 20050331
  Transmission Date: 20051028
  Serious: No
  Sender: FDA-Public Use
  Company Number: 2005S1000114

PATIENT
  Age: 45 Year
  Sex: Male

DRUGS (4)
  1. SORIATANE [Suspect]
     Indication: PSORIASIS
     Dosage: 25 MG, QD, PO
     Route: 048
     Dates: start: 20040101, end: 20040101
  2. SORIATANE [Suspect]
     Indication: PSORIASIS
     Dosage: 25 MG; QD; PO
     Route: 048
  3. SORIATANE [Suspect]
     Indication: PSORIASIS
     Dosage: 25 MG; BID; PO
     Route: 048
  4. FLUVASTATIN SODIUM [Concomitant]

REACTIONS (1)
  - NEPHROLITHIASIS [None]
